FAERS Safety Report 11759322 (Version 1)
Quarter: 2015Q4

REPORT INFORMATION
  Report Type: Spontaneous
  Country: US (occurrence: US)
  Receive Date: 20151120
  Receipt Date: 20151120
  Transmission Date: 20160304
  Serious: No
  Sender: FDA-Public Use
  Company Number: US-JNJFOC-20150915904

PATIENT
  Age: 76 Year
  Sex: Female
  Weight: 72.58 kg

DRUGS (5)
  1. OMEGA-RED KRILL [Concomitant]
     Indication: CARDIAC DISORDER
     Dosage: SINCE 3 YEARS 1 PILL PER DAY
     Route: 065
  2. IRON [Concomitant]
     Active Substance: IRON
     Indication: FATIGUE
     Dosage: 1 PILL PER DAY
     Route: 065
  3. VITAMIN B [Concomitant]
     Active Substance: VITAMIN B
     Indication: FATIGUE
     Dosage: AS NEEDED
     Route: 065
  4. WOMENS ROGAINE UNSCENTED [Suspect]
     Active Substance: MINOXIDIL
     Route: 061
  5. WOMENS ROGAINE UNSCENTED [Suspect]
     Active Substance: MINOXIDIL
     Indication: ALOPECIA
     Dosage: JUST A LITTLE DAB, DON^T REALLY KNOW, 1 OR 2 TWICE PER WEEK A MONTH AGO
     Route: 061

REACTIONS (2)
  - Inappropriate schedule of drug administration [Unknown]
  - Product formulation issue [Unknown]
